FAERS Safety Report 10365167 (Version 1)
Quarter: 2014Q3

REPORT INFORMATION
  Report Type: Spontaneous
  Country: US (occurrence: None)
  Receive Date: 20140804
  Receipt Date: 20140804
  Transmission Date: 20150326
  Serious: Yes (Other)
  Sender: FDA-Public Use
  Company Number: 2014US00972

PATIENT

DRUGS (3)
  1. CARBOPLATIN (CARBOPLATIN) INJECTION [Suspect]
     Active Substance: CARBOPLATIN
     Indication: NEOPLASM
     Dosage: AUC 5 ON DAY 1 EVERY 21 DAYS
  2. DOVITINIB (DOVITINIB) [Suspect]
     Active Substance: DOVITINIB LACTATE
     Indication: NEOPLASM
     Dosage: 200 MG/M2 ON DAYS 1-5, 8-12, AND 15-19 EVERY 21 DAYS
  3. GEMCITABINE (GEMCITABINE) INJECTION [Suspect]
     Active Substance: GEMCITABINE HYDROCHLORIDE
     Indication: NEOPLASM
     Dosage: 1,000 MG/M2 ON DAYS 1 AND 8 EVERY 21 DAYS
     Route: 042

REACTIONS (4)
  - Neutropenia [None]
  - Fatigue [None]
  - Thrombocytopenia [None]
  - Dyspnoea [None]
